FAERS Safety Report 8002471-0 (Version None)
Quarter: 2011Q4

REPORT INFORMATION
  Report Type: 
  Country: None (occurrence: None)
  Receive Date: 20111222
  Receipt Date: 20111214
  Transmission Date: 20120403
  Serious: Yes (Other)
  Sender: FDA-Public Use
  Company Number: US-JNJFOC-20111206951

PATIENT
  Age: 63 Year
  Sex: Female
  Weight: 102.06 kg

DRUGS (28)
  1. INVEGA [Suspect]
     Dosage: Q AM
     Route: 048
     Dates: start: 20091102, end: 20111213
  2. ATIVAN [Suspect]
     Indication: TENSION
     Dosage: 1-1.5MG
     Route: 048
     Dates: start: 20111213
  3. MECLIZINE [Concomitant]
     Indication: VERTIGO
     Dosage: AS NECESSARY
     Route: 048
     Dates: start: 20100922
  4. NEURONTIN [Concomitant]
     Indication: ARTHRITIS
     Route: 065
     Dates: start: 20110405
  5. INVEGA [Suspect]
     Indication: DEPRESSION
     Route: 048
     Dates: start: 20091102, end: 20110816
  6. INVEGA [Suspect]
     Route: 048
     Dates: start: 20110101, end: 20110101
  7. INVEGA [Suspect]
     Route: 048
     Dates: start: 20110101, end: 20110101
  8. SUMATRIPTAN [Concomitant]
     Indication: MIGRAINE
     Route: 048
     Dates: start: 20100922
  9. DOXEPIN [Concomitant]
     Indication: INSOMNIA
     Dosage: 1-2
     Route: 048
     Dates: start: 20110405
  10. CELEXA [Concomitant]
     Indication: MENTAL DISORDER
     Route: 048
     Dates: start: 20080107
  11. INVEGA [Suspect]
     Indication: BIPOLAR DISORDER
     Dosage: Q AM
     Route: 048
     Dates: start: 20091102, end: 20111213
  12. LEVOTHYROXINE SODIUM [Concomitant]
     Indication: HORMONE REPLACEMENT THERAPY
     Route: 048
     Dates: start: 20100922
  13. RANITIDINE [Concomitant]
     Indication: GASTROOESOPHAGEAL REFLUX DISEASE
     Route: 048
     Dates: start: 20100922
  14. INVEGA [Suspect]
     Route: 048
     Dates: start: 20091102, end: 20110816
  15. WELLBUTRIN XL [Concomitant]
     Indication: MENTAL DISORDER
     Dosage: QAM
     Route: 048
     Dates: start: 20071008, end: 20110816
  16. COMBIVENT [Concomitant]
     Indication: ASTHMA
     Route: 055
     Dates: start: 20100922
  17. ZYRTEC [Concomitant]
     Route: 065
     Dates: start: 20100210
  18. ATIVAN [Suspect]
     Indication: POOR QUALITY SLEEP
     Dosage: 1-1.5MG
     Route: 048
     Dates: start: 20111213
  19. GLIPIZIDE [Concomitant]
     Indication: TYPE 2 DIABETES MELLITUS
     Dosage: IF BS 75-150
     Route: 048
     Dates: start: 20110315
  20. SIMVASTATIN [Concomitant]
     Indication: BLOOD CHOLESTEROL
     Route: 048
     Dates: start: 20100326
  21. GLIPIZIDE [Concomitant]
     Indication: TYPE 2 DIABETES MELLITUS
     Dosage: IF BS 150 OR GREATER
     Route: 048
     Dates: start: 20100922
  22. ASPIRIN [Concomitant]
     Indication: ANTICOAGULANT THERAPY
     Route: 048
     Dates: start: 20100922
  23. VITAMIN D [Concomitant]
     Indication: NUTRITIONAL SUPPORT
     Route: 048
     Dates: start: 20110315
  24. TRAMADOL HCL [Concomitant]
     Indication: PAIN
     Route: 065
     Dates: start: 20110405
  25. PRILOSEC [Concomitant]
     Indication: PRODUCT USED FOR UNKNOWN INDICATION
     Route: 065
     Dates: start: 20111213
  26. ZYRTEC [Concomitant]
     Indication: MULTIPLE ALLERGIES
     Route: 048
     Dates: start: 20110210
  27. ADVAIR DISKUS 100/50 [Concomitant]
     Indication: ASTHMA
     Route: 055
     Dates: start: 20100922
  28. COGENTIN [Concomitant]
     Indication: PRODUCT USED FOR UNKNOWN INDICATION
     Route: 065
     Dates: start: 20110405

REACTIONS (4)
  - CEREBROVASCULAR ACCIDENT [None]
  - TENSION [None]
  - TREATMENT NONCOMPLIANCE [None]
  - STRESS [None]
